FAERS Safety Report 14961633 (Version 1)
Quarter: 2018Q2

REPORT INFORMATION
  Report Type: Other
  Country: US (occurrence: US)
  Receive Date: 20180601
  Receipt Date: 20180601
  Transmission Date: 20180711
  Serious: Yes (Death, Other)
  Sender: FDA-Public Use
  Company Number: US-WES PHARMA INC-2048825

PATIENT
  Age: 27 Year
  Sex: Female

DRUGS (1)
  1. OXYCODONE AND ACETAMINOPHEN [Suspect]
     Active Substance: ACETAMINOPHEN\OXYCODONE HYDROCHLORIDE
     Indication: PRODUCT USED FOR UNKNOWN INDICATION
     Route: 065

REACTIONS (7)
  - Hypotension [Unknown]
  - Depressed level of consciousness [Unknown]
  - Toxicity to various agents [Unknown]
  - Respiratory depression [Unknown]
  - Brain death [Fatal]
  - Hepatotoxicity [Unknown]
  - Bradypnoea [Unknown]
